FAERS Safety Report 13402461 (Version 1)
Quarter: 2017Q2

REPORT INFORMATION
  Report Type: Spontaneous
  Country: US (occurrence: US)
  Receive Date: 20170404
  Receipt Date: 20170404
  Transmission Date: 20170830
  Serious: Yes (Hospitalization)
  Sender: FDA-Public Use
  Company Number: US-CELGENEUS-USA-20170400145

PATIENT
  Age: 69 Year
  Sex: Male

DRUGS (2)
  1. ABRAXANE [Suspect]
     Active Substance: PACLITAXEL
     Indication: SQUAMOUS CELL CARCINOMA OF LUNG
     Route: 058
  2. CARBOPLATIN. [Suspect]
     Active Substance: CARBOPLATIN
     Indication: SQUAMOUS CELL CARCINOMA OF LUNG
     Route: 065

REACTIONS (3)
  - Sepsis [Unknown]
  - Hypotension [Unknown]
  - Neutropenia [Unknown]
